FAERS Safety Report 5182869-9 (Version None)
Quarter: 2006Q4

REPORT INFORMATION
  Report Type: 
  Country: None (occurrence: None)
  Receive Date: 20061220
  Receipt Date: 20051128
  Transmission Date: 20070319
  Serious: No
  Sender: FDA-Public Use
  Company Number: US-GLAXOSMITHKLINE-A0583596A

PATIENT
  Age: 32 Year
  Sex: Female

DRUGS (1)
  1. NICODERM CQ [Suspect]
     Dates: start: 20051126, end: 20051127

REACTIONS (6)
  - APPLICATION SITE PRURITUS [None]
  - APPLICATION SITE WARMTH [None]
  - DIZZINESS [None]
  - EYE SWELLING [None]
  - FEELING ABNORMAL [None]
  - WEIGHT DECREASED [None]
